FAERS Safety Report 20091154 (Version 6)
Quarter: 2022Q2

REPORT INFORMATION
  Report Type: Report from Study
  Country: MX (occurrence: MX)
  Receive Date: 20211119
  Receipt Date: 20220531
  Transmission Date: 20220720
  Serious: Yes (Life-Threatening, Other)
  Sender: FDA-Public Use
  Company Number: MX-NOVARTISPH-NVSC2021MX264719

PATIENT
  Age: 62 Year
  Sex: Female
  Weight: 68 kg

DRUGS (6)
  1. METFORMIN HYDROCHLORIDE\VILDAGLIPTIN [Suspect]
     Active Substance: METFORMIN HYDROCHLORIDE\VILDAGLIPTIN
     Indication: Diabetes mellitus
     Dosage: 1 DOSAGE FORM, BID
     Route: 048
     Dates: start: 2018
  2. METFORMIN HYDROCHLORIDE\VILDAGLIPTIN [Suspect]
     Active Substance: METFORMIN HYDROCHLORIDE\VILDAGLIPTIN
     Dosage: 1 DOSAGE FORM, BID (IN THE MORNING AND AT NIGHT)
     Route: 048
     Dates: start: 201802
  3. METFORMIN HYDROCHLORIDE\VILDAGLIPTIN [Suspect]
     Active Substance: METFORMIN HYDROCHLORIDE\VILDAGLIPTIN
     Dosage: 2 DOSAGE FORM, QD,2 OF 50/850 MG
     Route: 048
     Dates: start: 201802
  4. METFORMIN HYDROCHLORIDE\VILDAGLIPTIN [Suspect]
     Active Substance: METFORMIN HYDROCHLORIDE\VILDAGLIPTIN
     Dosage: 1 DOSAGE FORM, QD, 1 OF 50/850 MG
     Route: 065
     Dates: start: 202107, end: 202109
  5. HYDROCHLOROTHIAZIDE\VALSARTAN [Suspect]
     Active Substance: HYDROCHLOROTHIAZIDE\VALSARTAN
     Indication: Hypertension
     Dosage: 1 DOSAGE FORM, QD, 1 OF 50/12.5 MG
     Route: 048
  6. LOSARTAN [Concomitant]
     Active Substance: LOSARTAN
     Indication: Hypertension
     Dosage: 1 DF, QD
     Route: 048
     Dates: start: 2011

REACTIONS (12)
  - Diabetic coma [Recovered/Resolved]
  - Blood glucose increased [Recovered/Resolved]
  - Fall [Recovered/Resolved]
  - Stress [Recovered/Resolved]
  - Depression [Recovered/Resolved]
  - Listless [Recovered/Resolved]
  - Apathy [Unknown]
  - Blood glucose increased [Recovered/Resolved]
  - Blood glucose increased [Not Recovered/Not Resolved]
  - Asthenia [Recovered/Resolved]
  - Inappropriate schedule of product administration [Recovered/Resolved]
  - Product dose omission issue [Unknown]

NARRATIVE: CASE EVENT DATE: 20180313
